FAERS Safety Report 10577574 (Version 3)
Quarter: 2015Q1

REPORT INFORMATION
  Report Type: Spontaneous
  Country: US (occurrence: US)
  Receive Date: 20141111
  Receipt Date: 20150210
  Transmission Date: 20150720
  Serious: No
  Sender: FDA-Public Use
  Company Number: US-GLAXOSMITHKLINE-A1080405A

PATIENT

DRUGS (15)
  1. TYKERB [Suspect]
     Active Substance: LAPATINIB DITOSYLATE
     Dosage: 1000 MG, QD
  2. CRANBERRY. [Concomitant]
     Active Substance: CRANBERRY
  3. XGEVA [Concomitant]
     Active Substance: DENOSUMAB
  4. VITAMIN B6 [Concomitant]
     Active Substance: PYRIDOXINE HYDROCHLORIDE
  5. IMODIUM [Concomitant]
     Active Substance: LOPERAMIDE HYDROCHLORIDE
  6. VITAMIN D [Concomitant]
     Active Substance: CHOLECALCIFEROL
  7. EXCEDRIN [Concomitant]
     Active Substance: ACETAMINOPHEN\ASPIRIN\CAFFEINE
  8. TYKERB [Suspect]
     Active Substance: LAPATINIB DITOSYLATE
     Indication: BREAST CANCER STAGE IV
     Dosage: 5 DF, 1D
     Route: 048
     Dates: start: 20120721
  9. AROMASIN [Concomitant]
     Active Substance: EXEMESTANE
  10. L-LYSINE [Concomitant]
     Active Substance: LYSINE
  11. PAPAYA. [Concomitant]
     Active Substance: PAPAYA
  12. XELODA TABLET [Suspect]
     Active Substance: CAPECITABINE
     Indication: BREAST CANCER STAGE IV
     Dosage: 2 UNK, BID
     Route: 048
     Dates: start: 2013
  13. ACIDOPHILUS [Concomitant]
     Active Substance: LACTOBACILLUS ACIDOPHILUS
  14. HYDROCODONE [Concomitant]
     Active Substance: HYDROCODONE
  15. SYNTHROID [Concomitant]
     Active Substance: LEVOTHYROXINE SODIUM
     Dates: start: 201401

REACTIONS (7)
  - Dermatitis acneiform [Unknown]
  - Palmar-plantar erythrodysaesthesia syndrome [Not Recovered/Not Resolved]
  - Fatigue [Not Recovered/Not Resolved]
  - Stomatitis [Recovering/Resolving]
  - Thyroid disorder [Unknown]
  - Nasopharyngitis [Unknown]
  - Gait disturbance [Unknown]

NARRATIVE: CASE EVENT DATE: 201407
